FAERS Safety Report 5330096-4 (Version None)
Quarter: 2007Q2

REPORT INFORMATION
  Report Type: 
  Country: None (occurrence: None)
  Receive Date: 20070521
  Receipt Date: 20070508
  Transmission Date: 20071010
  Serious: Yes (Hospitalization, Disabling, Other)
  Sender: FDA-Public Use
  Company Number: US-MERCK-0611USA06807

PATIENT
  Age: 54 Year
  Sex: Female

DRUGS (2)
  1. FOSAMAX [Suspect]
     Indication: OSTEOPOROSIS
     Route: 048
     Dates: start: 19950101
  2. FOSAMAX PLUS D [Suspect]
     Indication: OSTEOPOROSIS
     Route: 048
     Dates: start: 19950101

REACTIONS (19)
  - ANXIETY [None]
  - CERVICOBRACHIAL SYNDROME [None]
  - DEPRESSION [None]
  - EAR DISCOMFORT [None]
  - FACIAL PAIN [None]
  - GASTROOESOPHAGEAL REFLUX DISEASE [None]
  - INFECTION [None]
  - MENISCUS LESION [None]
  - MYOFASCIAL PAIN SYNDROME [None]
  - NAUSEA [None]
  - OEDEMA MOUTH [None]
  - OSTEONECROSIS [None]
  - PARAESTHESIA [None]
  - SINUSITIS [None]
  - STRESS URINARY INCONTINENCE [None]
  - TOOTH DISORDER [None]
  - UTERINE LEIOMYOMA [None]
  - VENTRICULAR EXTRASYSTOLES [None]
  - VOMITING [None]
